FAERS Safety Report 4992425-0 (Version None)
Quarter: 2006Q1

REPORT INFORMATION
  Report Type: 
  Country: None (occurrence: None)
  Receive Date: 20060314
  Receipt Date: 20051228
  Transmission Date: 20060701
  Serious: Yes (Other)
  Sender: FDA-Public Use
  Company Number: 2005-02051

PATIENT
  Age: 68 Year
  Sex: Female

DRUGS (1)
  1. VELCADE [Suspect]
     Indication: MULTIPLE MYELOMA
     Dosage: 1.30 MG/M2
     Dates: start: 20050725, end: 20050915

REACTIONS (1)
  - NEUROPATHY PERIPHERAL [None]
